FAERS Safety Report 7709305-X (Version None)
Quarter: 2011Q3

REPORT INFORMATION
  Report Type: 
  Country: None (occurrence: None)
  Receive Date: 20110825
  Receipt Date: 20110728
  Transmission Date: 20111222
  Serious: No
  Sender: FDA-Public Use
  Company Number: US-TYCO HEALTHCARE/MALLINCKRODT-T201100986

PATIENT

DRUGS (6)
  1. ANDROGEL [Concomitant]
     Dosage: UNK
  2. VITAMINS                           /90003601/ [Concomitant]
  3. NEXIUM [Concomitant]
     Indication: GASTROOESOPHAGEAL REFLUX DISEASE
     Dosage: UNK
  4. FENTANYL-100 [Suspect]
     Indication: PAIN
     Dosage: 50-100 UG/HR Q48 HRS
     Route: 062
     Dates: start: 20110501
  5. NORCO [Concomitant]
     Indication: BREAKTHROUGH PAIN
     Dosage: UNK
  6. FENOFIBRATE [Concomitant]
     Indication: BLOOD CHOLESTEROL INCREASED
     Dosage: UNK

REACTIONS (1)
  - DRUG EFFECT DECREASED [None]
